FAERS Safety Report 10176169 (Version 1)
Quarter: 2014Q2

REPORT INFORMATION
  Report Type: Spontaneous
  Country: GB (occurrence: GB)
  Receive Date: 20140516
  Receipt Date: 20140516
  Transmission Date: 20141212
  Serious: Yes (Other)
  Sender: FDA-Public Use
  Company Number: GB-JNJFOC-20140503817

PATIENT
  Age: 15 Year
  Sex: Female

DRUGS (1)
  1. NORETHISTERONE [Suspect]
     Indication: MENSTRUAL CYCLE MANAGEMENT
     Route: 048
     Dates: start: 20140406, end: 20140414

REACTIONS (5)
  - Hepatic function abnormal [Recovering/Resolving]
  - Jaundice [Not Recovered/Not Resolved]
  - Pyrexia [Unknown]
  - Headache [Unknown]
  - Off label use [Unknown]
